FAERS Safety Report 16720453 (Version 2)
Quarter: 2020Q1

REPORT INFORMATION
  Report Type: Spontaneous
  Country: US (occurrence: US)
  Receive Date: 20190820
  Receipt Date: 20200224
  Transmission Date: 20200409
  Serious: Yes (Other)
  Sender: FDA-Public Use
  Company Number: US-ARRAY-2019-06130

PATIENT

DRUGS (4)
  1. MEKTOVI [Suspect]
     Active Substance: BINIMETINIB
     Indication: MALIGNANT MELANOMA
     Dosage: 30 MG, BID
     Route: 048
     Dates: start: 20190615
  2. MEKTOVI [Suspect]
     Active Substance: BINIMETINIB
     Dosage: 30 MG, BID
     Route: 048
  3. BRAFTOVI [Suspect]
     Active Substance: ENCORAFENIB
     Dosage: 300 MG, QD
     Route: 048
  4. BRAFTOVI [Suspect]
     Active Substance: ENCORAFENIB
     Indication: MALIGNANT MELANOMA
     Dosage: 300 MG, QD
     Route: 048
     Dates: start: 20190615

REACTIONS (3)
  - Liver disorder [Unknown]
  - Hepatitis [Unknown]
  - Off label use [Unknown]

NARRATIVE: CASE EVENT DATE: 20190615
